FAERS Safety Report 8256244-4 (Version None)
Quarter: 2012Q2

REPORT INFORMATION
  Report Type: 
  Country: None (occurrence: None)
  Receive Date: 20120403
  Receipt Date: 20120322
  Transmission Date: 20120825
  Serious: Yes (Other)
  Sender: FDA-Public Use
  Company Number: FR-ELI_LILLY_AND_COMPANY-FR201203007320

PATIENT
  Sex: Female

DRUGS (2)
  1. ALIMTA [Suspect]
     Dosage: 500 MG/M2, UNKNOWN
     Route: 042
  2. CARBOPLATIN [Concomitant]

REACTIONS (1)
  - CYTOLYTIC HEPATITIS [None]
